FAERS Safety Report 21475720 (Version 6)
Quarter: 2023Q2

REPORT INFORMATION
  Report Type: Spontaneous
  Country: CA (occurrence: CA)
  Receive Date: 20221019
  Receipt Date: 20230630
  Transmission Date: 20230722
  Serious: Yes (Other)
  Sender: FDA-Public Use
  Company Number: CA-CELLTRION INC.-2022CA012307

PATIENT

DRUGS (12)
  1. INFLECTRA [Suspect]
     Active Substance: INFLIXIMAB-DYYB
     Indication: Crohn^s disease
     Dosage: 0, 2 ,6 WEEKS, THEN EVERY 8 WEEKS.
     Route: 042
     Dates: start: 20190506, end: 20191009
  2. INFLECTRA [Suspect]
     Active Substance: INFLIXIMAB-DYYB
     Dosage: 0, 2, 6, THEN EVERY 6 WEEKS
     Route: 042
     Dates: start: 20220824
  3. INFLECTRA [Suspect]
     Active Substance: INFLIXIMAB-DYYB
     Dosage: 0, 2, 6, THEN EVERY 6 WEEKS
     Route: 042
     Dates: start: 20220907
  4. INFLECTRA [Suspect]
     Active Substance: INFLIXIMAB-DYYB
     Dosage: 400MG INSTEAD OF 420MG
     Route: 042
     Dates: start: 20221005
  5. INFLECTRA [Suspect]
     Active Substance: INFLIXIMAB-DYYB
     Dosage: 0, 2, 6, THEN EVERY 6 WEEKS
     Route: 042
     Dates: start: 20221116
  6. INFLECTRA [Suspect]
     Active Substance: INFLIXIMAB-DYYB
     Dosage: 0, 2, 6, THEN EVERY 6 WEEKS
     Route: 042
     Dates: start: 20221117
  7. INFLECTRA [Suspect]
     Active Substance: INFLIXIMAB-DYYB
     Dosage: 0, 2, 6, THEN EVERY 6 WEEKS
     Route: 042
     Dates: start: 20230104
  8. INFLECTRA [Suspect]
     Active Substance: INFLIXIMAB-DYYB
     Dosage: (435 MG) EVERY 6 WEEKS
     Route: 042
     Dates: start: 20230215
  9. INFLECTRA [Suspect]
     Active Substance: INFLIXIMAB-DYYB
     Dosage: (435 MG) EVERY 6 WEEKS
     Route: 042
     Dates: start: 20230310
  10. INFLECTRA [Suspect]
     Active Substance: INFLIXIMAB-DYYB
     Dosage: (430 MG) EVERY 6 WEEKS
     Route: 042
     Dates: start: 20230621
  11. PANTOPRAZOLE [Concomitant]
     Active Substance: PANTOPRAZOLE
     Dosage: UNK
  12. PREDNISONE [Concomitant]
     Active Substance: PREDNISONE
     Dosage: UNK, 2 COURSES OF PREDNISONE RECENTLY

REACTIONS (7)
  - Uveitis [Unknown]
  - Condition aggravated [Recovering/Resolving]
  - Arthralgia [Unknown]
  - Erythema nodosum [Unknown]
  - Off label use [Unknown]
  - Injection site extravasation [Recovering/Resolving]
  - Weight increased [Unknown]

NARRATIVE: CASE EVENT DATE: 20220824
